FAERS Safety Report 21716149 (Version 1)
Quarter: 2022Q4

REPORT INFORMATION
  Report Type: Spontaneous
  Country: US (occurrence: US)
  Receive Date: 20221212
  Receipt Date: 20221212
  Transmission Date: 20230112
  Serious: No
  Sender: FDA-Public Use
  Company Number: US-Global Blood Therapeutics Inc-US-GBT-22-03753

PATIENT
  Age: 40 Year
  Sex: Female

DRUGS (3)
  1. OXBRYTA [Suspect]
     Active Substance: VOXELOTOR
     Indication: Product used for unknown indication
     Dates: start: 202205, end: 202205
  2. OXBRYTA [Suspect]
     Active Substance: VOXELOTOR
     Indication: Product used for unknown indication
     Dates: start: 2022, end: 2022
  3. OXBRYTA [Suspect]
     Active Substance: VOXELOTOR
     Indication: Product used for unknown indication
     Dates: start: 2022

REACTIONS (5)
  - Vomiting [Recovering/Resolving]
  - Nausea [Recovering/Resolving]
  - Diarrhoea [Recovered/Resolved]
  - Fatigue [Unknown]
  - Malaise [Unknown]

NARRATIVE: CASE EVENT DATE: 20220501
